FAERS Safety Report 6546546-1 (Version None)
Quarter: 2010Q1

REPORT INFORMATION
  Report Type: 
  Country: None (occurrence: None)
  Receive Date: 20100120
  Receipt Date: 20091023
  Transmission Date: 20100710
  Serious: No
  Sender: FDA-Public Use
  Company Number: 2009-00688

PATIENT
  Age: 24 Year
  Sex: Male
  Weight: 94.3482 kg

DRUGS (2)
  1. ALLERGY RELIEF NASAL GEL [Suspect]
     Dosage: 1-2 DAILY FOR 7/8 MONTHS; FEB/MAR 2009-RECENTLY
     Dates: start: 20090101
  2. NASONEX [Concomitant]

REACTIONS (1)
  - ANOSMIA [None]
